FAERS Safety Report 23719942 (Version 1)
Quarter: 2024Q2

REPORT INFORMATION
  Report Type: Spontaneous
  Country: US (occurrence: None)
  Receive Date: 20240408
  Receipt Date: 20240408
  Transmission Date: 20240716
  Serious: No
  Sender: FDA-Public Use
  Company Number: None

PATIENT
  Age: 56 Year
  Sex: Female
  Weight: 58.5 kg

DRUGS (2)
  1. TYRVAYA [Suspect]
     Active Substance: VARENICLINE TARTRATE
     Indication: Sjogren^s syndrome
     Dosage: FREQUENCY : TWICE A DAY;?
     Route: 055
     Dates: start: 20240404, end: 20240408
  2. TYRVAYA [Suspect]
     Active Substance: VARENICLINE TARTRATE
     Indication: Dry eye

REACTIONS (4)
  - Cough [None]
  - Throat irritation [None]
  - Insomnia [None]
  - Heart rate increased [None]

NARRATIVE: CASE EVENT DATE: 20240408
